FAERS Safety Report 4429910-6 (Version None)
Quarter: 2004Q3

REPORT INFORMATION
  Report Type: 
  Country: None (occurrence: None)
  Receive Date: 20040820
  Receipt Date: 20040810
  Transmission Date: 20050211
  Serious: Yes (Other)
  Sender: FDA-Public Use
  Company Number: JP-BRISTOL-MYERS SQUIBB COMPANY-12672473

PATIENT
  Age: 13 Year
  Sex: Male

DRUGS (7)
  1. ENDOXAN [Suspect]
     Indication: GERM CELL CANCER
     Route: 041
     Dates: start: 20011218, end: 20011218
  2. LASTET [Suspect]
     Indication: GERM CELL CANCER
     Route: 041
     Dates: start: 20011218, end: 20011219
  3. UROMITEXAN [Suspect]
     Route: 042
     Dates: start: 20011218, end: 20011220
  4. METHOTREXATE [Suspect]
     Indication: GERM CELL CANCER
     Dosage: VIA ^IJ^
     Dates: start: 20011218, end: 20011218
  5. RANDA [Concomitant]
     Dates: start: 20011228, end: 20011228
  6. DECADRON [Concomitant]
     Dosage: VIA ^IJ^
     Dates: start: 20011218, end: 20011218
  7. KYTRIL [Concomitant]
     Dates: start: 20011218, end: 20020102

REACTIONS (1)
  - HYPONATRAEMIA [None]
